FAERS Safety Report 22131152 (Version 1)
Quarter: 2023Q1

REPORT INFORMATION
  Report Type: Spontaneous
  Country: NL (occurrence: NL)
  Receive Date: 20230323
  Receipt Date: 20230323
  Transmission Date: 20230418
  Serious: Yes (Hospitalization)
  Sender: FDA-Public Use
  Company Number: None

PATIENT
  Sex: Male
  Weight: 85 kg

DRUGS (6)
  1. SUNITINIB [Suspect]
     Active Substance: SUNITINIB
     Indication: Papillary renal cell carcinoma
     Dosage: 50 MILLIGRAM DAILY; SUNITINIB CAPSULE 25MG / BRAND NAME NOT SPECIFIED
     Dates: start: 20230202, end: 20230219
  2. LEVOTHYROXINE [Concomitant]
     Active Substance: LEVOTHYROXINE
     Indication: Product used for unknown indication
     Dosage: LEVOTHYROXINE TABLET 125UG (NATRIUM) / BRAND NAME NOT SPECIFIED;
  3. LEVOTHYROXINE [Concomitant]
     Active Substance: LEVOTHYROXINE
     Dosage: LEVOTHYROXINE TABLET 100UG (ZUUR) / BRAND NAME NOT SPECIFIED;
  4. SOTALOL [Concomitant]
     Active Substance: SOTALOL
     Indication: Product used for unknown indication
     Dosage: SOTALOL TABLET  80MG / BRAND NAME NOT SPECIFIED;
  5. AMLODIPINE [Concomitant]
     Active Substance: AMLODIPINE BESYLATE
     Indication: Product used for unknown indication
     Dosage: AMLODIPINE TABLET   5MG / BRAND NAME NOT SPECIFIED;
  6. ACETAMINOPHEN [Concomitant]
     Active Substance: ACETAMINOPHEN
     Indication: Product used for unknown indication
     Dosage: PARACETAMOL CAPSULE 500MG / BRAND NAME NOT SPECIFIED;

REACTIONS (3)
  - Neutropenia [Recovered/Resolved]
  - Renal impairment [Recovering/Resolving]
  - Hepatic enzyme increased [Recovering/Resolving]
